FAERS Safety Report 25688087 (Version 3)
Quarter: 2025Q3

REPORT INFORMATION
  Report Type: Spontaneous
  Country: US (occurrence: US)
  Receive Date: 20250818
  Receipt Date: 20250919
  Transmission Date: 20251021
  Serious: Yes (Hospitalization, Other)
  Sender: SANOFI AVENTIS
  Company Number: US-SA-2025SA239957

PATIENT
  Sex: Male
  Weight: 104.08 kg

DRUGS (2)
  1. DUPIXENT [Suspect]
     Active Substance: DUPILUMAB
     Indication: Dermatitis atopic
     Dosage: 300 MG, QOW
     Route: 058
  2. AMIODARONE [Concomitant]
     Active Substance: AMIODARONE

REACTIONS (4)
  - Atrial fibrillation [Unknown]
  - Dyspnoea [Recovering/Resolving]
  - Atrial flutter [Unknown]
  - Skin mass [Unknown]
